FAERS Safety Report 23142944 (Version 1)
Quarter: 2023Q4

REPORT INFORMATION
  Report Type: Report from Study
  Country: FR (occurrence: FR)
  Receive Date: 20231103
  Receipt Date: 20231103
  Transmission Date: 20240110
  Serious: Yes (Death, Other)
  Sender: FDA-Public Use
  Company Number: FR-JNJFOC-20231072542

PATIENT
  Age: 71 Year
  Sex: Male

DRUGS (4)
  1. BORTEZOMIB [Suspect]
     Active Substance: BORTEZOMIB
     Indication: Plasma cell myeloma
     Dosage: MG/DOSE 1 DOSE(S)/WEEK 4 WEEK(S)/CYCLE, TREATMENT LINE 5
     Route: 065
     Dates: end: 20220319
  2. DEXAMETHASONE [Suspect]
     Active Substance: DEXAMETHASONE
     Indication: Plasma cell myeloma
     Dosage: UNK
     Route: 065
     Dates: end: 20220319
  3. MELPHALAN [Suspect]
     Active Substance: MELPHALAN
     Indication: Plasma cell myeloma
     Dosage: MELPHALAN. 4 DOSE(S)/WEEK 1 WEEK(S)/
     Route: 065
     Dates: end: 20220319
  4. PREDNISOLONE [Suspect]
     Active Substance: PREDNISOLONE
     Indication: Plasma cell myeloma
     Dosage: 4 DOSE(S)/WEEK 1 WEEK(S)
     Route: 065
     Dates: end: 20220319

REACTIONS (3)
  - Plasma cell myeloma [Fatal]
  - Off label use [Unknown]
  - Intentional product use issue [Unknown]
